FAERS Safety Report 7125670-9 (Version None)
Quarter: 2010Q4

REPORT INFORMATION
  Report Type: 
  Country: None (occurrence: None)
  Receive Date: 20101129
  Receipt Date: 20101117
  Transmission Date: 20110411
  Serious: Yes (Death, Hospitalization)
  Sender: FDA-Public Use
  Company Number: A0798283A

PATIENT
  Age: 77 Year
  Sex: Female

DRUGS (6)
  1. AVANDAMET [Suspect]
     Route: 048
     Dates: start: 20050126, end: 20060101
  2. LOTREL [Concomitant]
  3. GLUCOVANCE [Concomitant]
  4. GEMFIBROZIL [Concomitant]
     Dates: end: 20050101
  5. TRICOR [Concomitant]
  6. ALDACTAZIDE [Concomitant]
     Dates: start: 20050801

REACTIONS (4)
  - CARDIAC FAILURE CONGESTIVE [None]
  - CARDIO-RESPIRATORY ARREST [None]
  - CORONARY ARTERY DISEASE [None]
  - MYOCARDIAL INFARCTION [None]
